FAERS Safety Report 13302250 (Version 2)
Quarter: 2017Q2

REPORT INFORMATION
  Report Type: Report from Study
  Country: CA (occurrence: CA)
  Receive Date: 20170307
  Receipt Date: 20170607
  Transmission Date: 20170830
  Serious: Yes (Death)
  Sender: FDA-Public Use
  Company Number: CA-HLSUS-2016-CA-000512

PATIENT
  Age: 59 Year
  Sex: Male

DRUGS (3)
  1. CLOZARIL [Suspect]
     Active Substance: CLOZAPINE
     Indication: SCHIZOAFFECTIVE DISORDER
     Dosage: 250MG BED TIME
     Route: 048
     Dates: start: 20140506
  2. LITHIUM. [Concomitant]
     Active Substance: LITHIUM
     Dosage: 680MG BED TIME
     Dates: start: 2014
  3. ABILIFY [Concomitant]
     Active Substance: ARIPIPRAZOLE
     Dosage: 20MG ONCE DAILY
     Dates: start: 2014

REACTIONS (1)
  - Oesophageal carcinoma [Fatal]

NARRATIVE: CASE EVENT DATE: 20160830
